FAERS Safety Report 4947892-5 (Version None)
Quarter: 2006Q1

REPORT INFORMATION
  Report Type: 
  Country: None (occurrence: None)
  Receive Date: 20060314
  Receipt Date: 20060301
  Transmission Date: 20060701
  Serious: Yes (Hospitalization)
  Sender: FDA-Public Use
  Company Number: 200602306

PATIENT
  Sex: Female

DRUGS (1)
  1. BOTOX [Suspect]
     Indication: TORTICOLLIS
     Dates: start: 20060201

REACTIONS (2)
  - DIARRHOEA [None]
  - EOSINOPHILIA [None]
